FAERS Safety Report 10677125 (Version 2)
Quarter: 2015Q2

REPORT INFORMATION
  Report Type: Spontaneous
  Country: JP (occurrence: JP)
  Receive Date: 20141226
  Receipt Date: 20150402
  Transmission Date: 20150821
  Serious: Yes (Other)
  Sender: FDA-Public Use
  Company Number: JP-BAYER-2014-187046

PATIENT
  Age: 70 Year
  Sex: Female

DRUGS (4)
  1. WARFARIN [Interacting]
     Active Substance: WARFARIN
     Indication: CORONARY ARTERY DILATATION
     Dosage: UNK
     Route: 048
  2. WARFARIN [Interacting]
     Active Substance: WARFARIN
     Indication: PRINZMETAL ANGINA
  3. BAYASPIRIN [Interacting]
     Active Substance: ASPIRIN
     Indication: PRINZMETAL ANGINA
  4. BAYASPIRIN [Suspect]
     Active Substance: ASPIRIN
     Indication: CORONARY ARTERY DILATATION
     Dosage: UNK
     Route: 048

REACTIONS (4)
  - Acute myocardial infarction [Recovered/Resolved]
  - Haematuria [None]
  - Labelled drug-drug interaction medication error [None]
  - Iron deficiency anaemia [None]

NARRATIVE: CASE EVENT DATE: 201407
